FAERS Safety Report 5159226-4 (Version None)
Quarter: 2006Q4

REPORT INFORMATION
  Report Type: 
  Country: None (occurrence: None)
  Receive Date: 20061120
  Receipt Date: 20061109
  Transmission Date: 20070319
  Serious: Yes (Hospitalization)
  Sender: FDA-Public Use
  Company Number: 2006AL003545

PATIENT
  Age: 79 Year
  Sex: Female

DRUGS (11)
  1. GABAPENTIN [Suspect]
     Indication: PAIN
     Dosage: 500  MG; QD; PO
     Route: 048
     Dates: start: 20061003, end: 20061008
  2. LACTULOSE [Concomitant]
  3. SENNA [Concomitant]
  4. ACETAMINOPHEN [Concomitant]
  5. CORSODYL [Concomitant]
  6. IBUPROFEN [Concomitant]
  7. BENDROFLUAZIDE [Concomitant]
  8. OXYCONTIN [Concomitant]
  9. OXYCODONE HCL [Concomitant]
  10. OMEPRAZOLE [Concomitant]
  11. AMITRIPTYLINE HCL [Concomitant]

REACTIONS (1)
  - NEUTROPENIC SEPSIS [None]
